FAERS Safety Report 7197844-2 (Version None)
Quarter: 2010Q4

REPORT INFORMATION
  Report Type: 
  Country: None (occurrence: None)
  Receive Date: 20101227
  Receipt Date: 20101215
  Transmission Date: 20110411
  Serious: Yes (Life-Threatening, Other)
  Sender: FDA-Public Use
  Company Number: JP-ROCHE-669931

PATIENT
  Sex: Female
  Weight: 61 kg

DRUGS (9)
  1. AVASTIN [Suspect]
     Indication: COLON CANCER METASTATIC
     Route: 041
     Dates: start: 20091028, end: 20091111
  2. ELPLAT [Suspect]
     Indication: COLON CANCER METASTATIC
     Route: 041
     Dates: start: 20091028, end: 20091111
  3. FLUOROURACIL [Suspect]
     Indication: COLON CANCER METASTATIC
     Dosage: ROUTE: INTRAVENOUS BOLUS
     Route: 042
     Dates: start: 20091028, end: 20091111
  4. FLUOROURACIL [Suspect]
     Dosage: ROUTE: INTRAVENOUS DRIP
     Route: 042
     Dates: start: 20091028, end: 20091111
  5. LEVOFOLINATE [Suspect]
     Indication: COLON CANCER METASTATIC
     Dosage: DRUG: UNKNOWNDRUG(LEVOFLINATE CALCIUM)
     Route: 041
     Dates: start: 20091028, end: 20091111
  6. HYPEN [Concomitant]
     Route: 048
     Dates: start: 20091031, end: 20091111
  7. PARIET [Concomitant]
     Dosage: DRUG: SODIUM RABEPRAZOLE
     Route: 048
     Dates: start: 20091009, end: 20091111
  8. DECADRON [Concomitant]
     Dosage: DRUG: DEXAMETHASONE SODIUM PHOSPHATE
     Route: 041
     Dates: start: 20091028, end: 20091029
  9. DECADRON [Concomitant]
     Dosage: DRUG: DEXAMETHASONE SODIUM PHOSPHATE
     Route: 041
     Dates: start: 20091110, end: 20091111

REACTIONS (3)
  - EMBOLISM ARTERIAL [None]
  - GASTROINTESTINAL PERFORATION [None]
  - PERITONITIS [None]
